FAERS Safety Report 20978351 (Version 2)
Quarter: 2022Q4

REPORT INFORMATION
  Report Type: Spontaneous
  Country: US (occurrence: US)
  Receive Date: 20220618
  Receipt Date: 20221012
  Transmission Date: 20230113
  Serious: No
  Sender: FDA-Public Use
  Company Number: US-SA-SAC20220615001469

PATIENT
  Age: 24 Year
  Sex: Female
  Weight: 104 kg

DRUGS (5)
  1. DUPIXENT [Suspect]
     Active Substance: DUPILUMAB
     Indication: Illness
     Dosage: 300 MG, QOW
     Route: 058
  2. TACROLIMUS [Concomitant]
     Active Substance: TACROLIMUS
     Route: 061
  3. IRON [Concomitant]
     Active Substance: IRON
     Dosage: UNK
     Route: 048
  4. VITAMIN C [Concomitant]
     Active Substance: ASCORBIC ACID
     Dosage: UNK
     Route: 048
  5. LACTOSE [Concomitant]
     Active Substance: LACTOSE
     Dosage: UNK
     Route: 065

REACTIONS (5)
  - Skin haemorrhage [Unknown]
  - Gait disturbance [Unknown]
  - Skin weeping [Unknown]
  - Scab [Unknown]
  - Skin exfoliation [Not Recovered/Not Resolved]
